FAERS Safety Report 8790508 (Version 1)
Quarter: 2012Q4

REPORT INFORMATION
  Report Type: Spontaneous
  Country: US (occurrence: None)
  Receive Date: 20120912
  Receipt Date: 20120912
  Transmission Date: 20130627
  Serious: Yes (Other)
  Sender: FDA-Public Use
  Company Number: None

PATIENT
  Age: 72 Year
  Sex: Female
  Weight: 61.24 kg

DRUGS (2)
  1. ESCITALOPRAM [Suspect]
     Indication: PANIC DISORDER
     Dosage: 20mg per day po
     Route: 048
     Dates: start: 20120319, end: 20120601
  2. ESCITALOPRAM [Suspect]
     Indication: STRESS
     Dosage: 20mg per day po
     Route: 048
     Dates: start: 20120319, end: 20120601

REACTIONS (3)
  - Panic attack [None]
  - Anxiety [None]
  - Product substitution issue [None]
